FAERS Safety Report 7884596-3 (Version None)
Quarter: 2011Q4

REPORT INFORMATION
  Report Type: 
  Country: None (occurrence: None)
  Receive Date: 20111102
  Receipt Date: 20111027
  Transmission Date: 20120403
  Serious: Yes (Other)
  Sender: FDA-Public Use
  Company Number: US-PFIZER INC-2011252354

PATIENT
  Sex: Male
  Weight: 62.2 kg

DRUGS (10)
  1. TOBRAMYCIN [Concomitant]
     Indication: CYSTIC FIBROSIS
     Dosage: UNK
  2. CLONAZEPAM [Concomitant]
     Indication: DEPRESSION
     Dosage: UNK
  3. CREON [Concomitant]
     Indication: ENZYME SUPPLEMENTATION
     Dosage: UNK
  4. PANCRELIPASE [Concomitant]
     Indication: ENZYME SUPPLEMENTATION
  5. AZITHROMYCIN [Concomitant]
     Indication: CYSTIC FIBROSIS
     Dosage: UNK
  6. LEXAPRO [Concomitant]
     Indication: DEPRESSION
     Dosage: UNK
  7. AUGMENTIN [Concomitant]
     Indication: CYSTIC FIBROSIS
     Dosage: UNK
  8. CIPRO [Concomitant]
     Indication: CYSTIC FIBROSIS
     Dosage: UNK
  9. ZOSYN [Suspect]
     Indication: CYSTIC FIBROSIS
     Dosage: UNK
     Dates: start: 20111006, end: 20111001
  10. ALLOPURINOL [Concomitant]
     Indication: CYSTIC FIBROSIS
     Dosage: UNK

REACTIONS (1)
  - EYE DISORDER [None]
